FAERS Safety Report 22228031 (Version 2)
Quarter: 2023Q2

REPORT INFORMATION
  Report Type: Spontaneous
  Country: JP (occurrence: JP)
  Receive Date: 20230419
  Receipt Date: 20230501
  Transmission Date: 20230721
  Serious: Yes (Other)
  Sender: FDA-Public Use
  Company Number: JP-ASTRAZENECA-230025881_070810_P_1

PATIENT
  Age: 1 Month
  Sex: Female

DRUGS (1)
  1. SYNAGIS [Suspect]
     Active Substance: PALIVIZUMAB
     Indication: Product used for unknown indication
     Dosage: 50 MG ONCE A MONTH
     Route: 030
     Dates: start: 20230111, end: 20230207

REACTIONS (1)
  - Clonic convulsion [Recovered/Resolved]

NARRATIVE: CASE EVENT DATE: 20230207
